FAERS Safety Report 7009737 (Version 2)
Quarter: 2014Q1

REPORT INFORMATION
  Report Type: Spontaneous
  Country: US (occurrence: None)
  Receive Date: 20090526
  Receipt Date: 20140212
  Transmission Date: 20141002
  Serious: Yes (Other)
  Sender: FDA-Public Use
  Company Number: 2009S1004046

PATIENT
  Age: 40 Year
  Sex: Female
  Weight: 118.84 kg

DRUGS (2)
  1. FLEET PHOSPHO-SODA ORAL SALINE LAXATIVE, GINGER-LEMON FLAVOR (ORAL SOLUTION) [Suspect]
     Indication: COLONOSCOPY
     Dosage: ; PO
     Route: 048
  2. ARMOUR THYROID (THYROID) [Concomitant]

REACTIONS (6)
  - Renal failure [None]
  - Renal atrophy [None]
  - Hydronephrosis [None]
  - Abdominal pain [None]
  - Nausea [None]
  - Hepatic steatosis [None]
